FAERS Safety Report 4970284-X (Version None)
Quarter: 2006Q2

REPORT INFORMATION
  Report Type: 
  Country: None (occurrence: None)
  Receive Date: 20060331
  Receipt Date: 20060120
  Transmission Date: 20061013
  Serious: Yes (Other)
  Sender: FDA-Public Use
  Company Number: 2006BH000893

PATIENT
  Age: 43 Year
  Sex: Male

DRUGS (4)
  1. IVEEGAM [Suspect]
     Indication: IDIOPATHIC THROMBOCYTOPENIC PURPURA
     Dosage: 40 GM; EVERY DAY; IV
     Route: 042
     Dates: start: 20051101, end: 20051104
  2. ALENDRONIC ACID [Concomitant]
  3. CALCICHEW-D3 [Concomitant]
  4. PREDNISOLONE [Concomitant]

REACTIONS (1)
  - PULMONARY EMBOLISM [None]
